FAERS Safety Report 10012043 (Version 1)
Quarter: 2014Q1

REPORT INFORMATION
  Report Type: Spontaneous
  Country: US (occurrence: None)
  Receive Date: 20140312
  Receipt Date: 20140312
  Transmission Date: 20141002
  Serious: Yes (Other)
  Sender: FDA-Public Use
  Company Number: FK201400769

PATIENT
  Age: 69 Year
  Sex: Male
  Weight: 76.36 kg

DRUGS (6)
  1. VINBLASTINE [Suspect]
     Indication: HODGKIN^S DISEASE
     Route: 042
     Dates: start: 20131126, end: 20140218
  2. LEVOTHYROXINE (LEVOTHYROXINE) [Concomitant]
  3. FLOMAX (MORNIFLUMATE) [Concomitant]
  4. BLEOMYCIN (BLEOMYCIN) [Concomitant]
  5. ADRIAMYCIN (DOXORUBICIN) INJ. USP 10MG/5ML [Concomitant]
  6. DOXORUBICIN (DOXORUBICIN) [Concomitant]

REACTIONS (2)
  - Cough [None]
  - Dyspnoea [None]
